FAERS Safety Report 7349639-4 (Version None)
Quarter: 2011Q1

REPORT INFORMATION
  Report Type: 
  Country: None (occurrence: None)
  Receive Date: 20110314
  Receipt Date: 20100521
  Transmission Date: 20110831
  Serious: No
  Sender: FDA-Public Use
  Company Number: A0863525A

PATIENT
  Age: 64 Year
  Sex: Male

DRUGS (3)
  1. CIPRO [Concomitant]
  2. AMOXIL [Suspect]
     Route: 048
  3. AUGMENTIN '125' [Suspect]
     Route: 048

REACTIONS (1)
  - DRUG INEFFECTIVE [None]
